FAERS Safety Report 5765062-8 (Version None)
Quarter: 2008Q2

REPORT INFORMATION
  Report Type: 
  Country: None (occurrence: None)
  Receive Date: 20080606
  Receipt Date: 20080606
  Transmission Date: 20081010
  Serious: Yes (Other)
  Sender: FDA-Public Use
  Company Number: None

PATIENT
  Age: 78 Year
  Sex: Female
  Weight: 58.9676 kg

DRUGS (2)
  1. FOSAMAX [Suspect]
     Indication: OSTEOPOROSIS
     Dosage: 70 MG WKLY WKLY ORAL
     Route: 048
     Dates: start: 20020101, end: 20080101
  2. ALENDRONATE SODIUM [Suspect]
     Dates: start: 20080101, end: 20080201

REACTIONS (4)
  - DRUG INEFFECTIVE [None]
  - MYALGIA [None]
  - OESOPHAGEAL FOOD IMPACTION [None]
  - ORAL INTAKE REDUCED [None]
